FAERS Safety Report 17835786 (Version 2)
Quarter: 2020Q2

REPORT INFORMATION
  Report Type: Spontaneous
  Country: US (occurrence: US)
  Receive Date: 20200528
  Receipt Date: 20200618
  Transmission Date: 20200714
  Serious: Yes (Disabling)
  Sender: FDA-Public Use
  Company Number: US-SA-2020SA137546

PATIENT

DRUGS (5)
  1. KEVZARA [Suspect]
     Active Substance: SARILUMAB
     Indication: RHEUMATOID ARTHRITIS
     Dosage: 200 MG, QOW, 200 MG/1.14 PEN
     Route: 058
     Dates: start: 20200524
  2. CYMBALTA [Concomitant]
     Active Substance: DULOXETINE HYDROCHLORIDE
  3. CALCIUM CITRATE;COLECALCIFEROL;MAGNESIUM [Concomitant]
  4. PRILOSEC [Concomitant]
     Active Substance: OMEPRAZOLE MAGNESIUM
  5. NAPROXEN. [Concomitant]
     Active Substance: NAPROXEN

REACTIONS (5)
  - Loss of personal independence in daily activities [Unknown]
  - Breast tenderness [Unknown]
  - Rash macular [Unknown]
  - Rash pruritic [Unknown]
  - Pain [Unknown]

NARRATIVE: CASE EVENT DATE: 2020
